FAERS Safety Report 21864284 (Version 4)
Quarter: 2023Q1

REPORT INFORMATION
  Report Type: Report from Study
  Country: US (occurrence: US)
  Receive Date: 20230116
  Receipt Date: 20230202
  Transmission Date: 20230418
  Serious: Yes (Death)
  Sender: FDA-Public Use
  Company Number: US-002147023-NVSC2023US008007

PATIENT

DRUGS (1)
  1. LEQVIO [Suspect]
     Active Substance: INCLISIRAN SODIUM
     Indication: Product used for unknown indication
     Dosage: 284 MG, OTHER (BASELING, 3 MONTH AND EVERY 6 MONTHS THEREAFTER)
     Route: 058

REACTIONS (2)
  - Death [Fatal]
  - Low density lipoprotein increased [Unknown]
